FAERS Safety Report 9197503 (Version 2)
Quarter: 2013Q2

REPORT INFORMATION
  Report Type: Spontaneous
  Country: US (occurrence: US)
  Receive Date: 20130328
  Receipt Date: 20130524
  Transmission Date: 20140414
  Serious: Yes (Hospitalization)
  Sender: FDA-Public Use
  Company Number: US-JNJFOC-20130312163

PATIENT
  Age: 54 Year
  Sex: Male
  Weight: 74.84 kg

DRUGS (6)
  1. XARELTO [Suspect]
     Indication: PULMONARY EMBOLISM
     Route: 048
     Dates: start: 20121114
  2. KRILL OIL [Concomitant]
     Route: 065
  3. CALCIUM MAGNESIUM [Concomitant]
     Dosage: 2 CAPSULES= 333MG CALCIUM 189 MG MAGNESIUM
     Route: 065
  4. VITAMIN D3 [Concomitant]
     Route: 065
  5. MILK THISTLE [Concomitant]
     Route: 065
  6. MULTIVITAMINS FOR MATURE ADULTS [Concomitant]
     Route: 065

REACTIONS (12)
  - Pharyngeal disorder [Recovered/Resolved with Sequelae]
  - Palpitations [Recovered/Resolved with Sequelae]
  - Heart rate irregular [Unknown]
  - Dyspnoea [Unknown]
  - Cold sweat [Unknown]
  - Dysphagia [Unknown]
  - Dizziness [Unknown]
  - Chest pain [Recovered/Resolved with Sequelae]
  - Tinnitus [Unknown]
  - Insomnia [Unknown]
  - Anxiety [Unknown]
  - Hyperhidrosis [Unknown]
